FAERS Safety Report 6676284-6 (Version None)
Quarter: 2010Q2

REPORT INFORMATION
  Report Type: 
  Country: None (occurrence: None)
  Receive Date: 20100412
  Receipt Date: 20100402
  Transmission Date: 20101027
  Serious: Yes (Hospitalization)
  Sender: FDA-Public Use
  Company Number: FR-NOVOPROD-306740

PATIENT
  Age: 70 Year
  Sex: Male

DRUGS (3)
  1. NOVOMIX 30 [Suspect]
     Indication: TYPE 2 DIABETES MELLITUS
     Dosage: UNKNOWN
     Route: 058
  2. COLCHIMAX                          /01722001/ [Suspect]
     Dosage: UNK. ENTERAL ADMINISTRATION
     Route: 048
     Dates: end: 20091201
  3. KETEK [Suspect]
     Indication: CHRONIC OBSTRUCTIVE PULMONARY DISEASE
     Dosage: 400 MG, QD, ENTERAL ADMINISTRATION
     Route: 048
     Dates: start: 20091126, end: 20091201

REACTIONS (2)
  - CYTOLYTIC HEPATITIS [None]
  - HYPOGLYCAEMIC COMA [None]
